FAERS Safety Report 7045438-1 (Version None)
Quarter: 2010Q4

REPORT INFORMATION
  Report Type: 
  Country: None (occurrence: None)
  Receive Date: 20101014
  Receipt Date: 20100824
  Transmission Date: 20110411
  Serious: No
  Sender: FDA-Public Use
  Company Number: US-ALLERGAN-1010967US

PATIENT
  Age: 56 Year
  Sex: Female

DRUGS (4)
  1. LATISSE [Suspect]
     Indication: GROWTH OF EYELASHES
     Dosage: 2 GTT, QHS
     Route: 061
     Dates: start: 20090304
  2. CELLUVISC [Concomitant]
  3. SYSTANE [Concomitant]
  4. RESTASIS [Concomitant]

REACTIONS (2)
  - MADAROSIS [None]
  - WRONG TECHNIQUE IN DRUG USAGE PROCESS [None]
